FAERS Safety Report 9278742 (Version 2)
Quarter: 2013Q4

REPORT INFORMATION
  Report Type: Spontaneous
  Country: IT (occurrence: None)
  Receive Date: 20130501
  Receipt Date: 20131202
  Transmission Date: 20140711
  Serious: Yes (Other)
  Sender: FDA-Public Use
  Company Number: 1689712

PATIENT
  Age: 59 Year
  Sex: Female

DRUGS (5)
  1. DOCETAXEL [Suspect]
     Indication: BREAST CANCER
     Dosage: CYCLICAL
     Route: 042
     Dates: start: 20130417, end: 20130417
  2. (EPIRUBICIN) [Concomitant]
  3. (ZOFRAN) [Concomitant]
  4. (RANIDIL) [Concomitant]
  5. (TRIMETON) [Concomitant]

REACTIONS (3)
  - Flushing [None]
  - Dyspepsia [None]
  - Hypersensitivity [None]
